FAERS Safety Report 19815171 (Version 2)
Quarter: 2021Q4

REPORT INFORMATION
  Report Type: Spontaneous
  Country: US (occurrence: US)
  Receive Date: 20210910
  Receipt Date: 20211001
  Transmission Date: 20220304
  Serious: Yes (Other)
  Sender: FDA-Public Use
  Company Number: US-PFIZER INC-2018468167

PATIENT
  Age: 60 Year
  Sex: Female

DRUGS (2)
  1. RELPAX [Suspect]
     Active Substance: ELETRIPTAN HYDROBROMIDE
     Indication: Headache
     Dosage: 40 MG, UNK (1 TABLET AT ONSET OF HEADACHE, MAY REPEAT IN 2 HOURS)
  2. RELPAX [Suspect]
     Active Substance: ELETRIPTAN HYDROBROMIDE
     Indication: Migraine
     Dosage: 40 MG, 2X/WEEK (1 TABLET AT ONSET OF HEADACHE, MAY REPEAT IN 2 HOURS)

REACTIONS (1)
  - Drug dependence [Unknown]
